FAERS Safety Report 7483264-X (Version None)
Quarter: 2011Q2

REPORT INFORMATION
  Report Type: 
  Country: None (occurrence: None)
  Receive Date: 20110509
  Receipt Date: 20110427
  Transmission Date: 20111010
  Serious: No
  Sender: FDA-Public Use
  Company Number: 2011-00245

PATIENT
  Age: 60 Year
  Sex: Female
  Weight: 54.4316 kg

DRUGS (3)
  1. ZICAM COLD REMEDY NASAL GEL [Suspect]
     Dosage: ^USED HEAVILY^
  2. LEVOXYL [Concomitant]
  3. ACTIVELLA [Concomitant]

REACTIONS (2)
  - ANOSMIA [None]
  - AGEUSIA [None]
